FAERS Safety Report 5518964-1 (Version None)
Quarter: 2007Q4

REPORT INFORMATION
  Report Type: 
  Country: None (occurrence: None)
  Receive Date: 20071116
  Receipt Date: 20071107
  Transmission Date: 20080405
  Serious: Yes (Hospitalization, Other)
  Sender: FDA-Public Use
  Company Number: PHEH2007US04731

PATIENT
  Age: 57 Year
  Sex: Female
  Weight: 58.956 kg

DRUGS (9)
  1. ESTRADERM [Suspect]
     Indication: MENOPAUSE
     Route: 061
  2. COMBIPATCH [Suspect]
     Indication: MENOPAUSE
     Route: 061
     Dates: start: 19920101, end: 19950101
  3. PREMPRO [Suspect]
     Indication: HORMONE REPLACEMENT THERAPY
     Dosage: 0.625/2.5MG
     Route: 048
     Dates: start: 19950101, end: 19990101
  4. SYNTHROID [Concomitant]
     Indication: HYPOTHYROIDISM
     Dosage: 0.75MG QD
     Dates: start: 19670101
  5. ZOLOFT [Concomitant]
     Indication: ANXIETY
     Dosage: 50MG QD
     Dates: start: 19940101
  6. ATIVAN [Concomitant]
     Dosage: PRN
  7. TAMOXIFEN CITRATE [Concomitant]
     Indication: BREAST CANCER
     Dosage: 20MG QD
     Dates: start: 19990601, end: 20040406
  8. PREMARIN [Suspect]
     Dosage: 0.625/0.3 MG
     Dates: start: 19860101, end: 19920101
  9. PROVERA [Suspect]
     Dates: start: 19860101, end: 19920101

REACTIONS (19)
  - ANXIETY [None]
  - BREAST CANCER [None]
  - BREAST CYST [None]
  - BREAST HYPERPLASIA [None]
  - BREAST MASS [None]
  - CHEST PAIN [None]
  - DYSPEPSIA [None]
  - ENDOMETRIAL HYPERTROPHY [None]
  - FIBROCYSTIC BREAST DISEASE [None]
  - GASTROOESOPHAGITIS [None]
  - HAEMORRHOIDS [None]
  - LUNG DISORDER [None]
  - MASTECTOMY [None]
  - PAIN [None]
  - POSTMENOPAUSAL HAEMORRHAGE [None]
  - RADIOTHERAPY [None]
  - REFLUX OESOPHAGITIS [None]
  - UTERINE DILATION AND CURETTAGE [None]
  - UTERINE POLYP [None]
